FAERS Safety Report 10271433 (Version 1)
Quarter: 2014Q1

REPORT INFORMATION
  Report Type: Spontaneous
  Country: US (occurrence: None)
  Receive Date: 20140306
  Receipt Date: 20140306
  Transmission Date: 20141002
  Serious: Yes (Other)
  Sender: FDA-Public Use
  Company Number: 163-21880-13081763

PATIENT
  Age: 63 Year
  Sex: Female

DRUGS (9)
  1. REVLIMID (LENALIDOMIDE) (25 MILLIGRAM, CAPSULES) [Suspect]
     Indication: PLASMA CELL MYELOMA
     Route: 048
     Dates: start: 200901
  2. SINGULAIR (MONTELUKAST) (TABLETS) [Concomitant]
  3. DEXAMETHASONE (DEXAMETHASONE) (UNKNOWN) [Concomitant]
  4. ZEMPLAR (PARICALCITOL) (CAPSULES) [Concomitant]
  5. ACYCLOVIR (ACICLOVIR) (TABLETS) [Concomitant]
  6. TOPROL XL (METOPROLOL SUCCINATE) (TABLETS) [Concomitant]
  7. NEXIUM (ESOMEPRAZOLE) (CAPSULES) [Concomitant]
  8. NEPHROCAPS (NEPHROCAPS) (CAPSULES) [Concomitant]
  9. CRESTOR (ROSUVASTATIN) (TABLETS) [Concomitant]

REACTIONS (1)
  - Bacteraemia [None]
